FAERS Safety Report 24028362 (Version 1)
Quarter: 2024Q2

REPORT INFORMATION
  Report Type: Spontaneous
  Country: US (occurrence: US)
  Receive Date: 20240628
  Receipt Date: 20240628
  Transmission Date: 20240716
  Serious: Yes (Hospitalization)
  Sender: FDA-Public Use
  Company Number: US-STRIDES ARCOLAB LIMITED-2023SP009357

PATIENT
  Age: 71 Year
  Sex: Male

DRUGS (17)
  1. VERAPAMIL [Suspect]
     Active Substance: VERAPAMIL HYDROCHLORIDE
     Indication: SUNCT syndrome
     Dosage: UNK
     Route: 065
     Dates: start: 2019
  2. MELOXICAM [Suspect]
     Active Substance: MELOXICAM
     Indication: SUNCT syndrome
     Dosage: UNK
     Route: 065
     Dates: start: 2019
  3. LYRICA [Suspect]
     Active Substance: PREGABALIN
     Indication: SUNCT syndrome
     Dosage: UNK
     Route: 065
     Dates: start: 2019
  4. METHADONE [Suspect]
     Active Substance: METHADONE HYDROCHLORIDE
     Indication: SUNCT syndrome
     Dosage: UNK
     Route: 065
     Dates: start: 201905
  5. OXYCONTIN [Suspect]
     Active Substance: OXYCODONE HYDROCHLORIDE
     Indication: SUNCT syndrome
     Dosage: UNK
     Route: 065
     Dates: start: 201905
  6. OXYCONTIN [Suspect]
     Active Substance: OXYCODONE HYDROCHLORIDE
     Dosage: UNK, LATER TITRATED OFF
     Route: 065
     Dates: start: 201905
  7. PROCHLORPERAZINE [Suspect]
     Active Substance: PROCHLORPERAZINE
     Indication: SUNCT syndrome
     Dosage: UNK
     Route: 065
     Dates: start: 201905
  8. TRILEPTAL [Suspect]
     Active Substance: OXCARBAZEPINE
     Indication: SUNCT syndrome
     Dosage: UNK
     Route: 065
     Dates: start: 2019
  9. TYLENOL [Suspect]
     Active Substance: ACETAMINOPHEN
     Indication: SUNCT syndrome
     Dosage: UNK
     Route: 065
     Dates: start: 2019
  10. VALSARTAN [Suspect]
     Active Substance: VALSARTAN
     Indication: SUNCT syndrome
     Dosage: UNK
     Route: 065
     Dates: start: 2019
  11. CYMBALTA [Concomitant]
     Active Substance: DULOXETINE HYDROCHLORIDE
     Indication: SUNCT syndrome
     Dosage: UNK
     Route: 065
     Dates: start: 2019
  12. DEPAKOTE [Concomitant]
     Active Substance: DIVALPROEX SODIUM
     Indication: SUNCT syndrome
     Dosage: UNK
     Route: 065
     Dates: start: 2019
  13. INDOMETHACIN [Concomitant]
     Active Substance: INDOMETHACIN
     Indication: SUNCT syndrome
     Dosage: UNK, SUBTHERAPEUTIC DOSE
     Route: 065
     Dates: start: 2019
  14. LAMICTAL [Concomitant]
     Active Substance: LAMOTRIGINE
     Indication: SUNCT syndrome
     Dosage: UNK
     Route: 065
     Dates: start: 2019
  15. LIDOCAINE [Concomitant]
     Active Substance: LIDOCAINE
     Indication: SUNCT syndrome
     Dosage: UNK
     Route: 042
     Dates: start: 201905
  16. MEXILETINE [Concomitant]
     Active Substance: MEXILETINE
     Indication: SUNCT syndrome
     Dosage: UNK
     Route: 065
     Dates: start: 201905
  17. TEGRETOL [Concomitant]
     Active Substance: CARBAMAZEPINE
     Indication: SUNCT syndrome
     Dosage: UNK
     Route: 065
     Dates: start: 2019

REACTIONS (2)
  - Treatment failure [Unknown]
  - Off label use [Unknown]

NARRATIVE: CASE EVENT DATE: 20190101
